FAERS Safety Report 10004712 (Version 2)
Quarter: 2014Q2

REPORT INFORMATION
  Report Type: Spontaneous
  Country: US (occurrence: US)
  Receive Date: 20140312
  Receipt Date: 20140404
  Transmission Date: 20141212
  Serious: Yes (Hospitalization)
  Sender: FDA-Public Use
  Company Number: US-GLAXOSMITHKLINE-A1063551A

PATIENT
  Age: 86 Year
  Sex: Male

DRUGS (4)
  1. AVODART [Suspect]
     Indication: PRODUCT USED FOR UNKNOWN INDICATION
     Dosage: 1CAP PER DAY
     Dates: start: 2011
  2. METOPROLOL [Concomitant]
  3. TAMSULOSIN [Concomitant]
  4. ISOSORBIDE [Concomitant]

REACTIONS (2)
  - Coronary arterial stent insertion [Recovered/Resolved]
  - Atrioventricular block [Recovered/Resolved]
